FAERS Safety Report 14664643 (Version 1)
Quarter: 2018Q1

REPORT INFORMATION
  Report Type: Spontaneous
  Country: FR (occurrence: FR)
  Receive Date: 20180321
  Receipt Date: 20180321
  Transmission Date: 20180509
  Serious: Yes (Hospitalization)
  Sender: FDA-Public Use
  Company Number: FR-PFIZER INC-2018109196

PATIENT
  Age: 42 Year
  Sex: Male

DRUGS (4)
  1. DEROXAT [Suspect]
     Active Substance: PAROXETINE HYDROCHLORIDE
     Dosage: UNK
     Route: 048
     Dates: start: 20180211, end: 20180211
  2. ALPRAZOLAM. [Suspect]
     Active Substance: ALPRAZOLAM
     Dosage: 19 MG, SINGLE
     Dates: start: 20180211, end: 20180211
  3. DEPAMIDE [Suspect]
     Active Substance: VALPROMIDE
     Dosage: 30 DF, SINGLE
     Route: 048
     Dates: start: 20180211, end: 20180211
  4. COCAINE [Suspect]
     Active Substance: COCAINE
     Dosage: UNK
     Route: 065
     Dates: start: 20180211, end: 20180211

REACTIONS (2)
  - Abnormal behaviour [Recovered/Resolved]
  - Overdose [Recovered/Resolved]

NARRATIVE: CASE EVENT DATE: 20180211
